FAERS Safety Report 5321444-X (Version None)
Quarter: 2007Q2

REPORT INFORMATION
  Report Type: 
  Country: None (occurrence: None)
  Receive Date: 20070510
  Receipt Date: 20070507
  Transmission Date: 20071010
  Serious: Yes (Disabling)
  Sender: FDA-Public Use
  Company Number: A0650258A

PATIENT
  Age: 17 Year
  Sex: Male

DRUGS (8)
  1. LAMICTAL [Suspect]
     Indication: EPILEPSY
     Dosage: 100MG FOUR TIMES PER DAY
     Route: 048
  2. PHENOBARBITAL TAB [Concomitant]
  3. TEGRETOL [Concomitant]
  4. DILANTIN [Concomitant]
  5. DIASTAT [Concomitant]
  6. OMNICEF [Concomitant]
  7. AMOXICILLIN [Concomitant]
  8. LEVAQUIN [Concomitant]

REACTIONS (6)
  - CONVULSION [None]
  - DRUG TOXICITY [None]
  - GAIT DISTURBANCE [None]
  - JOINT STIFFNESS [None]
  - PROSTATITIS [None]
  - THERAPEUTIC RESPONSE DECREASED [None]
